FAERS Safety Report 5290774-2 (Version None)
Quarter: 2007Q2

REPORT INFORMATION
  Report Type: 
  Country: None (occurrence: None)
  Receive Date: 20070409
  Receipt Date: 20070327
  Transmission Date: 20071010
  Serious: Yes (Other)
  Sender: FDA-Public Use
  Company Number: NL-PFIZER INC-2007026024

PATIENT
  Sex: Male
  Weight: 88 kg

DRUGS (1)
  1. LIPITOR [Suspect]
     Indication: HYPERCHOLESTEROLAEMIA
     Route: 048
     Dates: start: 20021001, end: 20030128

REACTIONS (4)
  - CHROMATURIA [None]
  - MUSCLE SPASMS [None]
  - MUSCULAR WEAKNESS [None]
  - MYALGIA [None]
